FAERS Safety Report 23546246 (Version 1)
Quarter: 2024Q1

REPORT INFORMATION
  Report Type: Spontaneous
  Country: FR (occurrence: FR)
  Receive Date: 20240220
  Receipt Date: 20240220
  Transmission Date: 20240410
  Serious: Yes (Hospitalization)
  Sender: FDA-Public Use
  Company Number: None

PATIENT
  Age: 10 Year
  Sex: Female
  Weight: 27 kg

DRUGS (2)
  1. IFOSFAMIDE [Suspect]
     Active Substance: IFOSFAMIDE
     Indication: Intracranial germ cell tumour
     Dosage: 1500 MG 1 TIME PER DAY
     Route: 042
     Dates: start: 20231006, end: 20231010
  2. CISPLATIN [Suspect]
     Active Substance: CISPLATIN
     Indication: Intracranial germ cell tumour
     Dosage: 20 MG 1 TIME PER DAY
     Route: 042
     Dates: start: 20231006, end: 20231010

REACTIONS (1)
  - Encephalopathy [Recovering/Resolving]

NARRATIVE: CASE EVENT DATE: 20231009
